FAERS Safety Report 6384488-5 (Version None)
Quarter: 2009Q3

REPORT INFORMATION
  Report Type: 
  Country: None (occurrence: None)
  Receive Date: 20090929
  Receipt Date: 20090917
  Transmission Date: 20100115
  Serious: Yes (Death)
  Sender: FDA-Public Use
  Company Number: CERZ-1000893

PATIENT
  Age: 10 Year
  Sex: Male
  Weight: 24.6 kg

DRUGS (3)
  1. CEREZYME [Suspect]
     Indication: GAUCHER'S DISEASE
     Dosage: 2400 IU, Q2W, INTRAVENOUS, 2400 IU, Q2W, INTRAVENOUS
     Route: 042
     Dates: start: 19991222, end: 20090812
  2. CEREZYME [Suspect]
     Indication: GAUCHER'S DISEASE
     Dosage: 2400 IU, Q2W, INTRAVENOUS, 2400 IU, Q2W, INTRAVENOUS
     Route: 042
     Dates: start: 19991222, end: 20090812
  3. CEREZYME [Suspect]

REACTIONS (1)
  - STATUS EPILEPTICUS [None]
